FAERS Safety Report 6168095-5 (Version None)
Quarter: 2009Q2

REPORT INFORMATION
  Report Type: 
  Country: None (occurrence: None)
  Receive Date: 20090423
  Receipt Date: 20090408
  Transmission Date: 20091009
  Serious: Yes (Hospitalization)
  Sender: FDA-Public Use
  Company Number: A-JP2009-24740

PATIENT
  Age: 80 Year
  Sex: Female
  Weight: 42 kg

DRUGS (5)
  1. TRACLEER [Suspect]
     Indication: SCLERODERMA
     Dosage: 62.5 MG, BID, ORAL; 62.5 MG, BID, ORAL ; 62.5 MG, BID, ORAL ; 62.5 MG, BID, ORAL
     Route: 048
     Dates: start: 20070814, end: 20070820
  2. TRACLEER [Suspect]
     Indication: SCLERODERMA
     Dosage: 62.5 MG, BID, ORAL; 62.5 MG, BID, ORAL ; 62.5 MG, BID, ORAL ; 62.5 MG, BID, ORAL
     Route: 048
     Dates: start: 20070821, end: 20070827
  3. TRACLEER [Suspect]
     Indication: SCLERODERMA
     Dosage: 62.5 MG, BID, ORAL; 62.5 MG, BID, ORAL ; 62.5 MG, BID, ORAL ; 62.5 MG, BID, ORAL
     Route: 048
     Dates: start: 20070828, end: 20070917
  4. TRACLEER [Suspect]
     Indication: SCLERODERMA
     Dosage: 62.5 MG, BID, ORAL; 62.5 MG, BID, ORAL ; 62.5 MG, BID, ORAL ; 62.5 MG, BID, ORAL
     Route: 048
     Dates: start: 20070918, end: 20080225
  5. ASPIRIN [Concomitant]

REACTIONS (6)
  - ALANINE AMINOTRANSFERASE INCREASED [None]
  - ASPARTATE AMINOTRANSFERASE INCREASED [None]
  - BLOOD ALKALINE PHOSPHATASE INCREASED [None]
  - BLOOD BILIRUBIN INCREASED [None]
  - CHOLELITHIASIS [None]
  - GAMMA-GLUTAMYLTRANSFERASE INCREASED [None]
